FAERS Safety Report 24141085 (Version 4)
Quarter: 2024Q3

REPORT INFORMATION
  Report Type: Spontaneous
  Country: JP (occurrence: JP)
  Receive Date: 20240726
  Receipt Date: 20240927
  Transmission Date: 20241016
  Serious: Yes (Death, Other)
  Sender: PFIZER
  Company Number: JP-PFIZER INC-202400223034

PATIENT
  Age: 81 Year
  Sex: Male

DRUGS (1)
  1. TAFAMIDIS [Suspect]
     Active Substance: TAFAMIDIS
     Indication: Cardiac amyloidosis
     Dosage: UNK
     Dates: start: 20230810

REACTIONS (4)
  - Pneumonia [Fatal]
  - Cardiac failure [Fatal]
  - Fracture [Unknown]
  - Loss of personal independence in daily activities [Unknown]
